FAERS Safety Report 11624432 (Version 1)
Quarter: 2015Q4

REPORT INFORMATION
  Report Type: Spontaneous
  Country: CH (occurrence: CH)
  Receive Date: 20151013
  Receipt Date: 20151013
  Transmission Date: 20160304
  Serious: Yes (Other)
  Sender: FDA-Public Use
  Company Number: CH-ROCHE-1642193

PATIENT
  Sex: Female

DRUGS (20)
  1. AVASTIN [Suspect]
     Active Substance: BEVACIZUMAB
     Indication: BREAST CANCER
     Route: 042
     Dates: start: 201201, end: 201211
  2. CISPLATIN. [Concomitant]
     Active Substance: CISPLATIN
     Route: 065
     Dates: start: 201509
  3. BONDRONAT [Concomitant]
     Active Substance: IBANDRONIC ACID
     Route: 065
     Dates: start: 201202
  4. METFORMIN [Suspect]
     Active Substance: METFORMIN HYDROCHLORIDE
     Indication: PRODUCT USED FOR UNKNOWN INDICATION
     Route: 065
  5. PACLITAXEL. [Concomitant]
     Active Substance: PACLITAXEL
     Indication: BREAST CANCER
     Route: 065
     Dates: start: 201201, end: 201211
  6. TAMOXIFEN [Concomitant]
     Active Substance: TAMOXIFEN
     Dosage: ADJUVANT ENDOCRINE THERAPY
     Route: 065
     Dates: start: 200904, end: 201201
  7. PANTOPRAZOL [Concomitant]
     Active Substance: PANTOPRAZOLE SODIUM
     Route: 065
  8. METAMIZOL [Concomitant]
     Active Substance: METAMIZOLE SODIUM
     Dosage: 0.5 G/ML IN RESERVE MAX. 4X30
     Route: 065
  9. CYCLOPHOSPHAMIDE. [Concomitant]
     Active Substance: CYCLOPHOSPHAMIDE
     Route: 065
     Dates: start: 201302, end: 201306
  10. PACLITAXEL. [Concomitant]
     Active Substance: PACLITAXEL
     Route: 065
     Dates: start: 201201, end: 201205
  11. GEMCITABINE [Concomitant]
     Active Substance: GEMCITABINE\GEMCITABINE HYDROCHLORIDE
     Route: 065
     Dates: start: 201211, end: 201302
  12. CITALOPRAM [Concomitant]
     Active Substance: CITALOPRAM HYDROBROMIDE
     Route: 065
  13. VINORELBINE [Concomitant]
     Active Substance: VINORELBINE\VINORELBINE TARTRATE
     Dosage: DISEASE PROGRESSION
     Route: 065
     Dates: start: 201412, end: 201507
  14. PACLITAXEL. [Concomitant]
     Active Substance: PACLITAXEL
     Route: 065
     Dates: start: 201211, end: 201302
  15. ANASTROZOL [Concomitant]
     Active Substance: ANASTROZOLE
     Route: 065
     Dates: start: 201306, end: 201401
  16. AFINITOR [Concomitant]
     Active Substance: EVEROLIMUS
     Route: 065
     Dates: start: 201402, end: 201404
  17. EPIRUBICIN [Concomitant]
     Active Substance: EPIRUBICIN
     Route: 065
     Dates: start: 201302, end: 201306
  18. ERIBULIN [Concomitant]
     Active Substance: ERIBULIN
     Dosage: STABLE DISEASE AFTER 3 CYCLES, DISEASE PROGRESSION AFTER 6 CYCLES
     Route: 065
     Dates: start: 201405, end: 201409
  19. XELODA [Suspect]
     Active Substance: CAPECITABINE
     Indication: BREAST CANCER
     Route: 065
     Dates: start: 201412, end: 201508
  20. AROMASIN [Concomitant]
     Active Substance: EXEMESTANE
     Route: 065
     Dates: start: 201402, end: 201404

REACTIONS (3)
  - Gamma-glutamyltransferase increased [Unknown]
  - Toxicity to various agents [Unknown]
  - Nephropathy toxic [Recovered/Resolved]
